FAERS Safety Report 24532993 (Version 2)
Quarter: 2024Q4

REPORT INFORMATION
  Report Type: Spontaneous
  Country: PL (occurrence: PL)
  Receive Date: 20241022
  Receipt Date: 20241024
  Transmission Date: 20250114
  Serious: Yes (Death, Hospitalization, Other)
  Sender: SANDOZ
  Company Number: PL-SUN PHARMACEUTICAL INDUSTRIES LTD-2022RR-355503

PATIENT
  Age: 69 Year
  Sex: Male

DRUGS (9)
  1. CISPLATIN [Suspect]
     Active Substance: CISPLATIN
     Indication: Lung adenocarcinoma stage IV
     Dosage: 75 MG/M2, IN 21-DAY CYCLES
     Route: 042
     Dates: start: 20210325
  2. PEMETREXED [Suspect]
     Active Substance: PEMETREXED
     Indication: Lung adenocarcinoma stage IV
     Dosage: 500 MG/M2, CYCLIC (21-DAYS CYCLES)
     Route: 042
     Dates: start: 20210325
  3. PEMBROLIZUMAB [Suspect]
     Active Substance: PEMBROLIZUMAB
     Indication: Lung adenocarcinoma stage IV
     Dosage: 200 MG FIXED DOSE (21-DAY CYCLE)
     Route: 042
     Dates: start: 20210325
  4. ZOLEDRONIC ACID [Suspect]
     Active Substance: ZOLEDRONIC ACID
     Indication: Lung adenocarcinoma
     Dosage: 4 M4 MG, UNK
     Route: 042
     Dates: start: 20210325
  5. DARBEPOETIN ALFA [Concomitant]
     Active Substance: DARBEPOETIN ALFA
     Indication: Prophylaxis
     Dosage: UNK
     Route: 065
  6. DARBEPOETIN ALFA [Concomitant]
     Active Substance: DARBEPOETIN ALFA
     Indication: Anaemia
  7. FILGRASTIM [Concomitant]
     Active Substance: FILGRASTIM
     Indication: Prophylaxis
     Dosage: UNK
     Route: 065
  8. FILGRASTIM [Concomitant]
     Active Substance: FILGRASTIM
     Indication: Neutropenia
  9. ZOLEDRONIC ACID [Concomitant]
     Active Substance: ZOLEDRONIC ACID
     Indication: Metastatic bone disease prophylaxis
     Dosage: 4 MG
     Route: 042
     Dates: start: 20210325

REACTIONS (12)
  - COVID-19 [Fatal]
  - Malignant neoplasm progression [Unknown]
  - Decreased appetite [Unknown]
  - Lumbar vertebral fracture [Unknown]
  - Haematotoxicity [Unknown]
  - Anaemia [Unknown]
  - Atrial fibrillation [Recovered/Resolved]
  - Nausea [Unknown]
  - Neutropenia [Unknown]
  - Anaemia [Unknown]
  - Fatigue [Unknown]
  - Decreased appetite [Unknown]

NARRATIVE: CASE EVENT DATE: 20210101
